FAERS Safety Report 21642807 (Version 1)
Quarter: 2022Q4

REPORT INFORMATION
  Report Type: Spontaneous
  Country: US (occurrence: US)
  Receive Date: 20221125
  Receipt Date: 20221125
  Transmission Date: 20230112
  Serious: No
  Sender: FDA-Public Use
  Company Number: US-SA-SAC20221122000803

PATIENT
  Age: 36 Year
  Sex: Female

DRUGS (1)
  1. CABLIVI [Suspect]
     Active Substance: CAPLACIZUMAB-YHDP
     Indication: Thrombotic microangiopathy
     Dosage: 11 MG, QD
     Route: 058
     Dates: start: 20221114

REACTIONS (5)
  - Dysstasia [Unknown]
  - Gait disturbance [Unknown]
  - Muscle fatigue [Unknown]
  - Platelet count decreased [Unknown]
  - Product use in unapproved indication [Unknown]
